FAERS Safety Report 10404476 (Version 1)
Quarter: 2014Q1

REPORT INFORMATION
  Report Type: Spontaneous
  Country: US (occurrence: None)
  Receive Date: 20140306
  Receipt Date: 20140306
  Transmission Date: 20141002
  Serious: No
  Sender: FDA-Public Use
  Company Number: 163-21880-12053698

PATIENT
  Age: 66 Year
  Sex: Female

DRUGS (1)
  1. REVLIMID (LENALIDOMIDE) (5 MILLIGRAM, CAPSULES) [Suspect]
     Indication: PLASMA CELL MYELOMA
     Dosage: 5 MG, 21 IN 21 D, PO
     Route: 048
     Dates: start: 20120301

REACTIONS (4)
  - Sunburn [None]
  - Muscle spasms [None]
  - Rash [None]
  - Plasma cell myeloma [None]
